FAERS Safety Report 5684846-8 (Version None)
Quarter: 2008Q1

REPORT INFORMATION
  Report Type: 
  Country: None (occurrence: None)
  Receive Date: 20080328
  Receipt Date: 20071205
  Transmission Date: 20080703
  Serious: Yes (Other)
  Sender: FDA-Public Use
  Company Number: US-BRISTOL-MYERS SQUIBB COMPANY-13964622

PATIENT
  Age: 37 Year
  Sex: Female

DRUGS (5)
  1. ERBITUX [Suspect]
     Indication: COLON CANCER METASTATIC
     Dosage: TEST DOSE 100MG
     Route: 042
     Dates: start: 20071025, end: 20071025
  2. DECADRON [Concomitant]
     Route: 042
  3. TAGAMET [Concomitant]
     Route: 042
  4. TYLENOL (CAPLET) [Concomitant]
     Route: 048
  5. BENADRYL [Concomitant]
     Route: 042

REACTIONS (1)
  - INFUSION RELATED REACTION [None]
